FAERS Safety Report 9199015 (Version 1)
Quarter: 2013Q1

REPORT INFORMATION
  Report Type: Spontaneous
  Country: AU (occurrence: AU)
  Receive Date: 20130329
  Receipt Date: 20130329
  Transmission Date: 20140127
  Serious: Yes (Other)
  Sender: FDA-Public Use
  Company Number: AU-BRISTOL-MYERS SQUIBB COMPANY-18709287

PATIENT
  Sex: Female

DRUGS (1)
  1. ABILIFY TABS 10 MG [Suspect]

REACTIONS (3)
  - Delusion [Unknown]
  - Paranoia [Unknown]
  - Insomnia [Unknown]
